FAERS Safety Report 12140864 (Version 3)
Quarter: 2016Q2

REPORT INFORMATION
  Report Type: Spontaneous
  Country: US (occurrence: US)
  Receive Date: 20160303
  Receipt Date: 20160420
  Transmission Date: 20160815
  Serious: Yes (Hospitalization)
  Sender: FDA-Public Use
  Company Number: US-ACTELION PHARMACEUTICALS US, INC.-A-US2016-131725

PATIENT
  Age: 39 Year
  Sex: Female

DRUGS (2)
  1. VELETRI [Suspect]
     Active Substance: EPOPROSTENOL
     Indication: PULMONARY ARTERIAL HYPERTENSION
     Dosage: 10 NG/KG, PER MIN
     Route: 042
     Dates: start: 20160205
  2. REQUIP [Concomitant]
     Active Substance: ROPINIROLE HYDROCHLORIDE
     Dosage: 0.75 MG, QPM

REACTIONS (20)
  - Medical device removal [Unknown]
  - Nasopharyngitis [Unknown]
  - Catheter site discharge [Unknown]
  - Catheter site swelling [Unknown]
  - Fluid retention [Unknown]
  - Pain in jaw [Unknown]
  - Nervousness [Unknown]
  - Device related infection [Unknown]
  - Muscle spasms [Unknown]
  - Pain in extremity [Unknown]
  - Catheter site erythema [Unknown]
  - Catheter site pain [Unknown]
  - Paraesthesia [Unknown]
  - Catheter site haemorrhage [Unknown]
  - Catheter site warmth [Unknown]
  - Central venous catheterisation [Unknown]
  - Arthralgia [Unknown]
  - Restless legs syndrome [Unknown]
  - Headache [Unknown]
  - Weight increased [Unknown]
